FAERS Safety Report 8712625 (Version 2)
Quarter: 2012Q4

REPORT INFORMATION
  Report Type: 
  Country: US (occurrence: US)
  Receive Date: 20120808
  Receipt Date: 20121227
  Transmission Date: 20130627
  Serious: Yes (Hospitalization)
  Sender: FDA-Public Use
  Company Number: US-BAYER-2012-077755

PATIENT
  Age: 23 Year
  Sex: Female
  Weight: 93.42 kg

DRUGS (7)
  1. YASMIN [Suspect]
     Dosage: UNK
     Dates: start: 200608, end: 200808
  2. OCELLA [Suspect]
     Dosage: UNK
     Dates: start: 200808, end: 200912
  3. KLONOPIN [Concomitant]
     Dosage: 0.5 mg, UNK
     Route: 048
  4. SEROQUEL [Concomitant]
     Dosage: 100mg-200mg, HS PRN
     Route: 048
  5. TOPIRAMATE [Concomitant]
     Dosage: 150 mg, HS
     Route: 048
  6. TRAZODONE [Concomitant]
     Dosage: 450 mg, HS
     Route: 048
  7. GARDASIL [Concomitant]
     Dosage: UNK
     Dates: start: 20090713

REACTIONS (7)
  - Pulmonary embolism [None]
  - Injury [None]
  - Pain [None]
  - Emotional distress [None]
  - General physical health deterioration [None]
  - Anxiety [None]
  - Pain [None]
